FAERS Safety Report 8475146-1 (Version None)
Quarter: 2012Q2

REPORT INFORMATION
  Report Type: 
  Country: None (occurrence: None)
  Receive Date: 20120628
  Receipt Date: 20120625
  Transmission Date: 20120825
  Serious: No
  Sender: FDA-Public Use
  Company Number: US-PFIZER INC-2012121408

PATIENT
  Sex: Male
  Weight: 193 kg

DRUGS (15)
  1. TRAMADOL [Concomitant]
     Indication: PAIN
     Dosage: 250 TO 300 MG IN A DAY
  2. TRAMADOL [Concomitant]
     Indication: PARAESTHESIA
  3. VICODIN [Concomitant]
     Indication: PAIN
     Dosage: 40 TO 50 MG IN A DAY
  4. VICODIN [Concomitant]
     Indication: MUSCULOSKELETAL PAIN
  5. NEURONTIN [Suspect]
     Indication: BURNING SENSATION
     Dosage: 600 MG, 3X/DAY
  6. NEURONTIN [Suspect]
     Indication: MUSCULOSKELETAL PAIN
  7. TRAMADOL [Concomitant]
     Indication: MUSCULOSKELETAL PAIN
  8. NEURONTIN [Suspect]
     Indication: PAIN
     Dosage: 300 MG, 3X/DAY
     Dates: start: 20110101
  9. VICODIN [Concomitant]
     Indication: PARAESTHESIA
  10. VICODIN [Concomitant]
     Indication: BURNING SENSATION
  11. VICODIN [Concomitant]
     Indication: PAIN IN EXTREMITY
  12. TRAMADOL [Concomitant]
     Indication: BURNING SENSATION
  13. NEURONTIN [Suspect]
     Indication: PARAESTHESIA
     Dosage: 2700MG IN A DAY
     Dates: start: 20120101
  14. NEURONTIN [Suspect]
     Indication: PAIN IN EXTREMITY
  15. TRAMADOL [Concomitant]
     Indication: PAIN IN EXTREMITY

REACTIONS (3)
  - MIGRAINE [None]
  - VISION BLURRED [None]
  - DRUG ADMINISTRATION ERROR [None]
